FAERS Safety Report 4305461-4 (Version None)
Quarter: 2004Q1

REPORT INFORMATION
  Report Type: 
  Country: None (occurrence: None)
  Receive Date: 20040226
  Receipt Date: 20031118
  Transmission Date: 20041129
  Serious: No
  Sender: FDA-Public Use
  Company Number: US-BRISTOL-MYERS SQUIBB COMPANY-12438776

PATIENT
  Age: 47 Year
  Sex: Male
  Weight: 170 kg

DRUGS (2)
  1. SUSTIVA [Suspect]
     Indication: HIV INFECTION
     Route: 048
     Dates: start: 20031107
  2. COMBIVIR [Concomitant]

REACTIONS (1)
  - DIZZINESS [None]
